FAERS Safety Report 9596235 (Version 2)
Quarter: 2013Q4

REPORT INFORMATION
  Report Type: Report from Study
  Country: HU (occurrence: HU)
  Receive Date: 20131004
  Receipt Date: 20131004
  Transmission Date: 20140711
  Serious: Yes (Death, Life-Threatening, Hospitalization)
  Sender: FDA-Public Use
  Company Number: PHHO2012HU004486

PATIENT
  Sex: 0

DRUGS (10)
  1. PLACEBO [Suspect]
     Indication: CORONARY ARTERY DISEASE
     Dosage: UNK
     Route: 048
     Dates: start: 20110117, end: 20110123
  2. PLACEBO [Suspect]
     Dosage: UNK
     Route: 048
     Dates: start: 20110124, end: 20120317
  3. ALISKIREN [Suspect]
     Dosage: 150 MG, UNK
  4. ASPIRIN [Concomitant]
     Indication: MYOCARDIAL ISCHAEMIA
     Dosage: 100 MG, QD
     Route: 048
     Dates: start: 2000
  5. CO-RENITEC [Concomitant]
     Indication: HYPERTENSION
     Dosage: 20/12.5 MG 1 X DAILY
     Route: 048
     Dates: start: 2000, end: 20120229
  6. BISOBLOC [Concomitant]
     Indication: HYPERTENSION
     Dosage: 5 MG, QD
     Route: 048
     Dates: start: 2000, end: 20120229
  7. DIAPREL [Concomitant]
     Indication: DIABETES MELLITUS
     Dosage: 60 MG, QD
     Route: 048
     Dates: start: 201011
  8. PREDUCTAL [Concomitant]
     Indication: MYOCARDIAL ISCHAEMIA
     Dosage: 35 MG, BID
     Route: 048
     Dates: start: 201011
  9. INEGY [Concomitant]
     Indication: HYPERLIPIDAEMIA
     Dosage: 10/20 MG QD
     Route: 048
     Dates: start: 201011
  10. INEGY [Concomitant]
     Dosage: 20 MG, QD
     Route: 048
     Dates: start: 201011

REACTIONS (12)
  - Hypovolaemic shock [Fatal]
  - Gastrointestinal haemorrhage [Fatal]
  - Sepsis [Fatal]
  - Multi-organ failure [Fatal]
  - Prostate cancer metastatic [Fatal]
  - Metastases to liver [Fatal]
  - Metastases to spine [Fatal]
  - Tumour compression [Fatal]
  - Ureteric obstruction [Fatal]
  - Bronchopneumonia [Fatal]
  - Renal failure acute [Recovering/Resolving]
  - Urinary retention [Recovered/Resolved]
